FAERS Safety Report 5745487-7 (Version None)
Quarter: 2008Q2

REPORT INFORMATION
  Report Type: 
  Country: None (occurrence: None)
  Receive Date: 20080521
  Receipt Date: 20080509
  Transmission Date: 20081010
  Serious: Yes (Other)
  Sender: FDA-Public Use
  Company Number: US-ELI_LILLY_AND_COMPANY-US200805001917

PATIENT
  Age: 51 Year
  Sex: Female

DRUGS (4)
  1. PROZAC [Suspect]
     Indication: DEPRESSION
     Dosage: 40 MG, DAILY (1/D)
     Dates: start: 19910101
  2. STRATTERA [Suspect]
     Indication: DEPRESSION
     Dosage: 36 MG, DAILY (1/D)
     Dates: start: 20080208
  3. WELLBUTRIN [Concomitant]
  4. FLUOXETINE [Concomitant]

REACTIONS (7)
  - BLOOD CHOLESTEROL INCREASED [None]
  - DEPRESSION [None]
  - HAEMATURIA [None]
  - NEPHROLITHIASIS [None]
  - OCCULT BLOOD [None]
  - PANCREATIC CYST [None]
  - THERAPEUTIC RESPONSE DECREASED [None]
